FAERS Safety Report 5839595-X (Version None)
Quarter: 2008Q3

REPORT INFORMATION
  Report Type: 
  Country: None (occurrence: None)
  Receive Date: 20080811
  Receipt Date: 20080715
  Transmission Date: 20090109
  Serious: No
  Sender: FDA-Public Use
  Company Number: A0737738A

PATIENT
  Age: 49 Year
  Sex: Female

DRUGS (14)
  1. TREXIMET [Suspect]
     Indication: MIGRAINE
     Dosage: 85MG AS REQUIRED
     Route: 048
  2. BACLOFEN [Concomitant]
  3. ESTRING [Concomitant]
  4. IBUPROFEN [Concomitant]
  5. TOPAMAX [Concomitant]
  6. ZANTAC [Concomitant]
  7. PRAVACHOL [Concomitant]
  8. IMITREX [Concomitant]
  9. ASPIRIN [Concomitant]
  10. IRON [Concomitant]
  11. POTASSIUM CHLORIDE [Concomitant]
  12. FOLIC ACID [Concomitant]
  13. ACIDOPHILUS [Concomitant]
  14. VIACTIV CALCIUM [Concomitant]

REACTIONS (4)
  - LIMB INJURY [None]
  - MUSCULOSKELETAL PAIN [None]
  - PAIN IN EXTREMITY [None]
  - PHARMACEUTICAL PRODUCT COMPLAINT [None]
